FAERS Safety Report 9274369 (Version 5)
Quarter: 2017Q1

REPORT INFORMATION
  Report Type: Spontaneous
  Country: US (occurrence: US)
  Receive Date: 20130506
  Receipt Date: 20170209
  Transmission Date: 20170429
  Serious: Yes (Disabling, Other)
  Sender: FDA-Public Use
  Company Number: US-009507513-1305USA002095

PATIENT
  Sex: Male
  Weight: 98.87 kg

DRUGS (1)
  1. PROPECIA [Suspect]
     Active Substance: FINASTERIDE
     Indication: ANDROGENETIC ALOPECIA
     Dosage: 1 MG, QD
     Route: 048
     Dates: start: 199901, end: 2000

REACTIONS (22)
  - Gastrooesophageal reflux disease [Unknown]
  - Epidermal naevus [Unknown]
  - Genital lesion [Unknown]
  - Testicular seminoma (pure) stage I [Unknown]
  - Germ cell neoplasm [Unknown]
  - Depression [Not Recovered/Not Resolved]
  - Cognitive disorder [Not Recovered/Not Resolved]
  - Fall [Unknown]
  - Epididymal cyst [Unknown]
  - Joint injury [Unknown]
  - Rash [Unknown]
  - Haematoma [Recovered/Resolved]
  - Cyst [Unknown]
  - Ligament rupture [Unknown]
  - Inguinal hernia [Recovered/Resolved]
  - Libido decreased [Unknown]
  - Anxiety [Not Recovered/Not Resolved]
  - Sexual dysfunction [Not Recovered/Not Resolved]
  - Erectile dysfunction [Unknown]
  - Semen volume decreased [Unknown]
  - Abdominal pain [Recovered/Resolved]
  - Nocturia [Unknown]

NARRATIVE: CASE EVENT DATE: 200101
